FAERS Safety Report 11454788 (Version 1)
Quarter: 2015Q3

REPORT INFORMATION
  Report Type: Spontaneous
  Country: US (occurrence: US)
  Receive Date: 20150831
  Receipt Date: 20150831
  Transmission Date: 20151125
  Serious: No
  Sender: FDA-Public Use
  Company Number: US-ELI_LILLY_AND_COMPANY-US201005003779

PATIENT
  Sex: Female

DRUGS (3)
  1. CYMBALTA [Suspect]
     Active Substance: DULOXETINE HYDROCHLORIDE
     Indication: DYSTHYMIC DISORDER
     Dosage: 30 MG, UNK
     Dates: start: 201004
  2. FISH OIL [Concomitant]
     Active Substance: FISH OIL
  3. BABY ASPIRIN [Concomitant]
     Active Substance: ASPIRIN

REACTIONS (5)
  - Off label use [Not Recovered/Not Resolved]
  - Dry mouth [Unknown]
  - Myalgia [Unknown]
  - Restlessness [Unknown]
  - Epistaxis [Unknown]

NARRATIVE: CASE EVENT DATE: 2010
